FAERS Safety Report 8490881-7 (Version None)
Quarter: 2012Q2

REPORT INFORMATION
  Report Type: 
  Country: None (occurrence: None)
  Receive Date: 20120628
  Receipt Date: 20120628
  Transmission Date: 20120825
  Serious: No
  Sender: FDA-Public Use
  Company Number: None

PATIENT
  Age: 55 Year
  Sex: Female
  Weight: 70.3075 kg

DRUGS (1)
  1. FLONASE [Suspect]
     Indication: MULTIPLE ALLERGIES
     Dosage: 2 SPRAYS/NOSTRIL 2X DAY NOSE
     Route: 045
     Dates: start: 20120612

REACTIONS (16)
  - DIARRHOEA [None]
  - URTICARIA [None]
  - PHARYNGITIS [None]
  - INFLUENZA LIKE ILLNESS [None]
  - OROPHARYNGEAL PAIN [None]
  - IRRITABILITY [None]
  - FATIGUE [None]
  - BACK PAIN [None]
  - PAIN [None]
  - BREATH ODOUR [None]
  - CANDIDIASIS [None]
  - NAUSEA [None]
  - HEADACHE [None]
  - EAR PAIN [None]
  - LYMPHADENOPATHY [None]
  - COUGH [None]
